FAERS Safety Report 4414797-8 (Version None)
Quarter: 2004Q3

REPORT INFORMATION
  Report Type: 
  Country: None (occurrence: None)
  Receive Date: 20040804
  Receipt Date: 20031010
  Transmission Date: 20050211
  Serious: No
  Sender: FDA-Public Use
  Company Number: US-BRISTOL-MYERS SQUIBB COMPANY-12408811

PATIENT
  Age: 61 Year
  Sex: Female
  Weight: 57 kg

DRUGS (4)
  1. GLUCOVANCE [Suspect]
     Indication: GLUCOSE URINE PRESENT
     Dosage: DOSAGE FORM= TABLET 5/500 MG
     Route: 048
     Dates: start: 20031010
  2. BUSPAR [Concomitant]
  3. BENADRYL [Concomitant]
  4. ASPIRIN [Concomitant]

REACTIONS (2)
  - ASTHENIA [None]
  - NERVOUSNESS [None]
